FAERS Safety Report 12387734 (Version 1)
Quarter: 2016Q2

REPORT INFORMATION
  Report Type: Spontaneous
  Country: US (occurrence: US)
  Receive Date: 20160520
  Receipt Date: 20160520
  Transmission Date: 20160815
  Serious: No
  Sender: FDA-Public Use
  Company Number: US-009507513-1605USA009076

PATIENT
  Age: 62 Year
  Sex: Male

DRUGS (1)
  1. RAGWITEK [Suspect]
     Active Substance: AMBROSIA ARTEMISIIFOLIA POLLEN
     Indication: SEASONAL ALLERGY
     Dosage: STRENGTH: 12 AMB A1-U; 12 AMB A 1-U/ ONCE DAILY; ^BY MOUTH^
     Route: 060

REACTIONS (2)
  - Nasal disorder [Recovered/Resolved]
  - Nasal odour [Recovered/Resolved]
